FAERS Safety Report 16851535 (Version 5)
Quarter: 2020Q1

REPORT INFORMATION
  Report Type: Spontaneous
  Country: IN (occurrence: IN)
  Receive Date: 20190925
  Receipt Date: 20200313
  Transmission Date: 20200409
  Serious: Yes (Other)
  Sender: FDA-Public Use
  Company Number: IN-PFIZER INC-2019359704

PATIENT
  Age: 71 Year
  Sex: Male
  Weight: 57 kg

DRUGS (4)
  1. SUTENT [Suspect]
     Active Substance: SUNITINIB MALATE
     Dosage: 50 MG (DAILY FOR 2 WEEKS AND 2 WEEKS OFF)
     Route: 048
     Dates: start: 2019
  2. SUTENT [Suspect]
     Active Substance: SUNITINIB MALATE
     Indication: METASTATIC RENAL CELL CARCINOMA
     Dosage: 50 MG, CYCLIC (ONCE A DAY, 2 WEEKS ON AND 1 WEEK OFF)
     Route: 048
     Dates: start: 20190821, end: 2019
  3. ZOLDRIA [Concomitant]
     Active Substance: ZOLEDRONIC ACID
     Dosage: 4 MG, UNK
     Route: 042
     Dates: start: 20191012, end: 20191012
  4. SUTENT [Suspect]
     Active Substance: SUNITINIB MALATE
     Dosage: 50 MG, CYCLIC (2 WEEKS ON 1 WEEK OFF)

REACTIONS (4)
  - Decreased appetite [Unknown]
  - Neoplasm progression [Unknown]
  - Immobile [Unknown]
  - Asthenia [Unknown]

NARRATIVE: CASE EVENT DATE: 2019
